FAERS Safety Report 8854489 (Version 5)
Quarter: 2013Q4

REPORT INFORMATION
  Report Type: Spontaneous
  Country: US (occurrence: US)
  Receive Date: 20121023
  Receipt Date: 20131209
  Transmission Date: 20140711
  Serious: Yes (Hospitalization, Other)
  Sender: FDA-Public Use
  Company Number: US-009507513-1201USA03928

PATIENT
  Sex: Male
  Weight: 73.92 kg

DRUGS (3)
  1. FOSAMAX [Suspect]
     Indication: OSTEOPOROSIS
     Dosage: 70 MG, QW
     Route: 048
     Dates: end: 20081203
  2. FOSAMAX [Suspect]
     Indication: OSTEOPENIA
  3. CALCIUM CITRATE [Concomitant]
     Dosage: UNK

REACTIONS (34)
  - Femur fracture [Recovering/Resolving]
  - Intramedullary rod insertion [Unknown]
  - Humerus fracture [Unknown]
  - Cardiac pacemaker insertion [Unknown]
  - Metastases to bone [Unknown]
  - Fracture nonunion [Recovering/Resolving]
  - Medical device removal [Unknown]
  - Rheumatoid arthritis [Unknown]
  - Herpes zoster [Unknown]
  - Fall [Unknown]
  - Spinal deformity [Unknown]
  - Spinal deformity [Unknown]
  - Spinal compression fracture [Not Recovered/Not Resolved]
  - Intervertebral disc degeneration [Not Recovered/Not Resolved]
  - Spondylolisthesis [Unknown]
  - Spinal osteoarthritis [Unknown]
  - Osteoarthritis [Unknown]
  - Non-cardiac chest pain [Unknown]
  - Upper limb fracture [Unknown]
  - Facial bones fracture [Unknown]
  - Kyphosis [Unknown]
  - Fall [Unknown]
  - Cardiac disorder [Unknown]
  - Depression [Unknown]
  - Arthritis [Unknown]
  - Aortic calcification [Unknown]
  - Thoracic vertebral fracture [Not Recovered/Not Resolved]
  - Lumbar vertebral fracture [Not Recovered/Not Resolved]
  - Tachycardia [Unknown]
  - Intervertebral disc degeneration [Unknown]
  - Abdominal discomfort [Unknown]
  - Back pain [Unknown]
  - Muscle spasms [Unknown]
  - Drug ineffective [Unknown]
